FAERS Safety Report 4362145-4 (Version None)
Quarter: 2004Q2

REPORT INFORMATION
  Report Type: 
  Country: None (occurrence: None)
  Receive Date: 20040517
  Receipt Date: 20040503
  Transmission Date: 20050107
  Serious: No
  Sender: FDA-Public Use
  Company Number: TPA2003A01734

PATIENT
  Age: 73 Year
  Sex: Female

DRUGS (1)
  1. ACTOS [Suspect]
     Indication: DIABETES MELLITUS
     Dosage: PER ORAL
     Route: 048

REACTIONS (6)
  - BLOOD PRESSURE INCREASED [None]
  - DIABETIC RETINOPATHY [None]
  - MACULAR OEDEMA [None]
  - RETINAL HAEMORRHAGE [None]
  - VISUAL ACUITY REDUCED [None]
  - WEIGHT INCREASED [None]
